FAERS Safety Report 20160356 (Version 2)
Quarter: 2022Q1

REPORT INFORMATION
  Report Type: Spontaneous
  Country: JP (occurrence: JP)
  Receive Date: 20211208
  Receipt Date: 20220103
  Transmission Date: 20220423
  Serious: Yes (Other)
  Sender: FDA-Public Use
  Company Number: JP-BRISTOL-MYERS SQUIBB COMPANY-BMS-2021-099718

PATIENT
  Age: 83 Year
  Sex: Female
  Weight: 63 kg

DRUGS (9)
  1. ORENCIA [Suspect]
     Active Substance: ABATACEPT
     Indication: Rheumatoid arthritis
     Dosage: 2 VIAL
     Route: 041
     Dates: start: 20190712
  2. IGURATIMOD [Suspect]
     Active Substance: IGURATIMOD
     Indication: Rheumatoid arthritis
     Dosage: 25 MILLIGRAM, QD
     Route: 048
     Dates: start: 200907, end: 201001
  3. IGURATIMOD [Suspect]
     Active Substance: IGURATIMOD
     Dosage: 25 MILLIGRAM, QD
     Route: 048
     Dates: start: 20160712, end: 20200807
  4. METHOTREXATE [Concomitant]
     Active Substance: METHOTREXATE
     Indication: Rheumatoid arthritis
     Dosage: 6 MILLIGRAM, QD
     Route: 048
     Dates: start: 20090716, end: 20160823
  5. MIZORIBINE [Concomitant]
     Active Substance: MIZORIBINE
     Indication: Rheumatoid arthritis
     Dosage: 50 MILLIGRAM, QD
     Route: 065
     Dates: start: 200907, end: 201001
  6. MIZORIBINE [Concomitant]
     Active Substance: MIZORIBINE
     Dosage: 50 MILLIGRAM, QD
     Route: 065
     Dates: start: 20190603, end: 20200612
  7. SULFASALAZINE [Concomitant]
     Active Substance: SULFASALAZINE
     Indication: Product used for unknown indication
     Dosage: UNKNOWN
     Route: 048
  8. TACROLIMUS [Concomitant]
     Active Substance: TACROLIMUS
     Indication: Product used for unknown indication
     Dosage: UNKNOWN
     Route: 048
  9. SULFAMETHOXAZOLE\TRIMETHOPRIM [Concomitant]
     Active Substance: SULFAMETHOXAZOLE\TRIMETHOPRIM
     Indication: Infection prophylaxis
     Dosage: 0.5G, 3TABS/1TIME, 3TIMES/WEEK
     Route: 048

REACTIONS (1)
  - Hepatitis B reactivation [Unknown]

NARRATIVE: CASE EVENT DATE: 20191101
